FAERS Safety Report 14557471 (Version 2)
Quarter: 2018Q1

REPORT INFORMATION
  Report Type: Spontaneous
  Country: CA (occurrence: CA)
  Receive Date: 20180221
  Receipt Date: 20180327
  Transmission Date: 20180509
  Serious: No
  Sender: FDA-Public Use
  Company Number: CA-PFIZER INC-2017281130

PATIENT
  Age: 66 Year
  Sex: Female

DRUGS (6)
  1. MOMETASONE [Concomitant]
     Active Substance: MOMETASONE
     Dosage: 1 SPARY IN EACH NOSTRIL DAILY
     Route: 045
  2. TYLENOL [Concomitant]
     Active Substance: ACETAMINOPHEN
     Indication: PAIN
  3. HUMALOG MIX75/25 [Concomitant]
     Active Substance: INSULIN LISPRO
     Dosage: ADJUSTED TO 38 UNITS, 2X/DAY PRE-MEAL AT BREAKFAST AND SUPPER
     Route: 058
  4. TYLENOL [Concomitant]
     Active Substance: ACETAMINOPHEN
     Indication: ARTHRALGIA
     Dosage: UNK
  5. SYNTHROID [Concomitant]
     Active Substance: LEVOTHYROXINE SODIUM
     Dosage: 100 UG, DAILY
     Route: 048
  6. SOMAVERT [Suspect]
     Active Substance: PEGVISOMANT
     Indication: ACROMEGALY
     Dosage: 10 MG, DAILY
     Route: 058
     Dates: start: 20170620

REACTIONS (10)
  - Nausea [Recovered/Resolved]
  - Headache [Recovering/Resolving]
  - Inflammation [Unknown]
  - Injection site pain [Recovered/Resolved]
  - Insulin-like growth factor increased [Unknown]
  - Hypersomnia [Unknown]
  - Swelling face [Not Recovered/Not Resolved]
  - Injection site erythema [Unknown]
  - Pain [Not Recovered/Not Resolved]
  - Malaise [Not Recovered/Not Resolved]

NARRATIVE: CASE EVENT DATE: 20170620
